FAERS Safety Report 10263964 (Version 1)
Quarter: 2014Q2

REPORT INFORMATION
  Report Type: Spontaneous
  Country: US (occurrence: US)
  Receive Date: 20140627
  Receipt Date: 20140627
  Transmission Date: 20141212
  Serious: Yes (Disabling)
  Sender: FDA-Public Use
  Company Number: US-009507513-1406USA008798

PATIENT
  Age: 22 Year
  Sex: Female
  Weight: 85.26 kg

DRUGS (1)
  1. IMPLANON [Suspect]
     Indication: CONTRACEPTION
     Dosage: ONE ROD IMPLANTED EVERY THREE YEARS, ROUTE: IMPLANT IN LEFT ARM
     Route: 059
     Dates: start: 201312

REACTIONS (4)
  - Implant site pain [Not Recovered/Not Resolved]
  - Implant site swelling [Not Recovered/Not Resolved]
  - Implant site pain [Recovered/Resolved]
  - Implant site pain [Recovered/Resolved]
